FAERS Safety Report 15066607 (Version 4)
Quarter: 2018Q3

REPORT INFORMATION
  Report Type: Spontaneous
  Country: JP (occurrence: JP)
  Receive Date: 20180626
  Receipt Date: 20180807
  Transmission Date: 20181010
  Serious: Yes (Other)
  Sender: FDA-Public Use
  Company Number: JP-ELI_LILLY_AND_COMPANY-JP201806011050

PATIENT
  Age: 89 Year
  Sex: Female
  Weight: 47 kg

DRUGS (3)
  1. LYRICA [Concomitant]
     Active Substance: PREGABALIN
     Indication: PHANTOM PAIN
     Dosage: 75 MG, BID
     Route: 048
     Dates: start: 20140609
  2. CELECOX [Concomitant]
     Active Substance: CELECOXIB
     Indication: PHANTOM PAIN
     Dosage: 100 MG, BID
     Route: 048
     Dates: start: 20151119
  3. DULOXETINE HYDROCHLORIDE. [Suspect]
     Active Substance: DULOXETINE HYDROCHLORIDE
     Indication: PHANTOM PAIN
     Dosage: 20 MG, DAILY
     Route: 048
     Dates: start: 20180613, end: 20180617

REACTIONS (5)
  - Ileus [Recovered/Resolved]
  - Gastrointestinal hypomotility [Unknown]
  - Nausea [Recovered/Resolved]
  - Blood sodium decreased [Unknown]
  - Off label use [Recovered/Resolved]

NARRATIVE: CASE EVENT DATE: 20180613
